FAERS Safety Report 21477918 (Version 1)
Quarter: 2022Q4

REPORT INFORMATION
  Report Type: Spontaneous
  Country: US (occurrence: None)
  Receive Date: 20221018
  Receipt Date: 20221018
  Transmission Date: 20230113
  Serious: Yes (Hospitalization)
  Sender: FDA-Public Use
  Company Number: None

PATIENT
  Age: 67 Year
  Weight: 98.88 kg

DRUGS (12)
  1. CAPECITABINE [Suspect]
     Active Substance: CAPECITABINE
     Indication: Cholangiocarcinoma
     Dosage: FREQUENCY : TWICE A DAY;?
     Route: 048
  2. AKYNZEO INTRAVENOUS [Concomitant]
  3. BIOTIN [Concomitant]
     Active Substance: BIOTIN
  4. FOLIC ACID [Concomitant]
     Active Substance: FOLIC ACID
  5. GEMCITABINE HYDROCHLOROTHIAZIDE [Concomitant]
  6. LORAZEPAM [Concomitant]
     Active Substance: LORAZEPAM
  7. NEXIUM [Concomitant]
     Active Substance: ESOMEPRAZOLE MAGNESIUM
  8. NORVASC [Concomitant]
     Active Substance: AMLODIPINE BESYLATE
  9. PERCOCET [Concomitant]
     Active Substance: ACETAMINOPHEN\OXYCODONE HYDROCHLORIDE
  10. GEMCITABINE HYDROCHLORIDE [Concomitant]
     Active Substance: GEMCITABINE HYDROCHLORIDE
  11. ONDANSETRON [Concomitant]
     Active Substance: ONDANSETRON
  12. OXYCODONE HYDROCHLORIDE [Concomitant]
     Active Substance: OXYCODONE HYDROCHLORIDE

REACTIONS (1)
  - Hospice care [None]
